FAERS Safety Report 26043832 (Version 1)
Quarter: 2025Q4

REPORT INFORMATION
  Report Type: Spontaneous
  Country: JP (occurrence: JP)
  Receive Date: 20251114
  Receipt Date: 20251114
  Transmission Date: 20260117
  Serious: Yes (Other)
  Sender: SANOFI AVENTIS
  Company Number: JP-SA-2025SA335027

PATIENT
  Age: 65 Year
  Sex: Female

DRUGS (2)
  1. TAXOTERE [Suspect]
     Active Substance: DOCETAXEL
     Indication: Lung adenocarcinoma
     Route: 041
  2. RAMUCIRUMAB [Suspect]
     Active Substance: RAMUCIRUMAB
     Indication: Lung adenocarcinoma
     Route: 065

REACTIONS (4)
  - Diverticulitis [Unknown]
  - Deep vein thrombosis [Unknown]
  - Diverticulum intestinal haemorrhagic [Unknown]
  - Haemoptysis [Unknown]
